FAERS Safety Report 8792737 (Version 1)
Quarter: 2012Q4

REPORT INFORMATION
  Report Type: 
  Country: BR (occurrence: BR)
  Receive Date: 20120918
  Receipt Date: 20120918
  Transmission Date: 20130627
  Serious: Yes (Disabling, Other)
  Sender: FDA-Public Use
  Company Number: BR-BAYER-2012-094828

PATIENT
  Age: 41 Year
  Sex: Female

DRUGS (5)
  1. BETAFERON [Suspect]
     Indication: RELAPSING-REMITTING MULTIPLE SCLEROSIS
     Dosage: 1 ml, QOD
     Route: 058
     Dates: start: 200910
  2. MECLIZINE [Concomitant]
     Indication: OTOSCLEROSIS
     Dosage: 1 DF, HS
     Route: 048
     Dates: start: 2008
  3. MECLIZINE [Concomitant]
     Indication: INSOMNIA
  4. CLONAZEPAM [Concomitant]
     Indication: OTOSCLEROSIS
     Dosage: 1 DF, QD
     Route: 048
     Dates: start: 2008
  5. CLONAZEPAM [Concomitant]
     Indication: INSOMNIA

REACTIONS (8)
  - Balance disorder [Not Recovered/Not Resolved]
  - Asthma [Not Recovered/Not Resolved]
  - Aphagia [Recovered/Resolved]
  - Tremor [Not Recovered/Not Resolved]
  - Dysstasia [Not Recovered/Not Resolved]
  - Paraesthesia [Not Recovered/Not Resolved]
  - Formication [Not Recovered/Not Resolved]
  - Visual impairment [Recovering/Resolving]
